FAERS Safety Report 7450070-1 (Version None)
Quarter: 2011Q2

REPORT INFORMATION
  Report Type: 
  Country: None (occurrence: None)
  Receive Date: 20110421
  Receipt Date: 20110406
  Transmission Date: 20111010
  Serious: Yes (Death, Hospitalization)
  Sender: FDA-Public Use
  Company Number: AE 2011-124

PATIENT
  Age: 50 Year
  Sex: Female

DRUGS (4)
  1. LEVOTHYROXINE SODIUM [Concomitant]
  2. RISPERIDONE [Concomitant]
  3. CLOZAPINE [Suspect]
     Indication: SCHIZOPHRENIA, PARANOID TYPE
     Dosage: 125-300 MG DAILY PO
     Route: 048
  4. OLANZAPINE [Concomitant]

REACTIONS (16)
  - OEDEMA PERIPHERAL [None]
  - ENCEPHALOPATHY [None]
  - ABDOMINAL PAIN UPPER [None]
  - JAUNDICE [None]
  - RENAL IMPAIRMENT [None]
  - NAUSEA [None]
  - HYPOTHERMIA [None]
  - DECREASED APPETITE [None]
  - SOMNOLENCE [None]
  - LIVER DISORDER [None]
  - PLATELET COUNT DECREASED [None]
  - HEPATIC NECROSIS [None]
  - ACUTE RESPIRATORY DISTRESS SYNDROME [None]
  - ASCITES [None]
  - MULTI-ORGAN FAILURE [None]
  - VOMITING [None]
